FAERS Safety Report 8821561 (Version 1)
Quarter: 2012Q4

REPORT INFORMATION
  Report Type: 
  Country: US (occurrence: US)
  Receive Date: 20121002
  Receipt Date: 20121002
  Transmission Date: 20130627
  Serious: Yes (Other)
  Sender: FDA-Public Use
  Company Number: CHPA2012US020381

PATIENT
  Age: 42 Year
  Sex: Female

DRUGS (4)
  1. TRIAMINIC DAY TIME COLD AND COUGH [Suspect]
     Indication: NASOPHARYNGITIS
     Dosage: 2 TSP, Q4H PRN
     Route: 048
     Dates: start: 1991
  2. TRIAMINIC DAY TIME COLD AND COUGH [Suspect]
     Dosage: UNK, UNK
     Route: 048
     Dates: start: 1976, end: 1991
  3. TRIAMINIC DAY TIME COLD AND COUGH [Suspect]
     Indication: INFLUENZA
     Dosage: 2 TSP, Q4H PRN
     Route: 048
     Dates: start: 1991
  4. TRIAMINIC DAY TIME COLD AND COUGH [Suspect]
     Dosage: UNK, UNK
     Route: 048
     Dates: start: 1976, end: 1991

REACTIONS (1)
  - Asthma [Recovered/Resolved]
